FAERS Safety Report 24154573 (Version 2)
Quarter: 2024Q3

REPORT INFORMATION
  Report Type: Spontaneous
  Country: CN (occurrence: CN)
  Receive Date: 20240731
  Receipt Date: 20240916
  Transmission Date: 20241016
  Serious: Yes (Hospitalization)
  Sender: NOVO NORDISK
  Company Number: CN-NOVOPROD-1256116

PATIENT
  Age: 75 Year
  Sex: Male
  Weight: 67 kg

DRUGS (8)
  1. NOVORAPID [Suspect]
     Active Substance: INSULIN ASPART
     Dosage: 12 IU, TID (12 U IN THE MORNING, 12 U AT NOON AND 12 U IN THE EVENING)
  2. NOVORAPID [Suspect]
     Active Substance: INSULIN ASPART
     Dosage: 15 IU, TID (15 U IN THE MORNING, 15 U AT NOON AND 15 U IN THE EVENING)
  3. NOVORAPID [Suspect]
     Active Substance: INSULIN ASPART
     Dosage: 18 IU (BEFORE LUNCH)
     Dates: start: 20240712
  4. NOVORAPID [Suspect]
     Active Substance: INSULIN ASPART
     Dosage: 20 UNITS
  5. NOVORAPID [Suspect]
     Active Substance: INSULIN ASPART
     Indication: Type 2 diabetes mellitus
     Dosage: 10 IU, TID (10 BEFORE BREAKFAST, 10 BEFORE LUNCH AND 10 BEFORE SUPPER)
  6. NOVORAPID [Suspect]
     Active Substance: INSULIN ASPART
     Dosage: 18 U AT SUPPER AS NEEDED
  7. LANTUS [Concomitant]
     Active Substance: INSULIN GLARGINE
     Dosage: 15 IU, QD AT 10 PM (DOSE INCREASED)
  8. LANTUS [Concomitant]
     Active Substance: INSULIN GLARGINE
     Indication: Type 2 diabetes mellitus
     Dosage: 12 IU, QD

REACTIONS (6)
  - Diabetes mellitus inadequate control [Unknown]
  - Device leakage [Unknown]
  - Injection site induration [Unknown]
  - Drug ineffective [Unknown]
  - Product quality issue [Unknown]
  - Wrong technique in product usage process [Unknown]
